FAERS Safety Report 5962008-4 (Version None)
Quarter: 2008Q4

REPORT INFORMATION
  Report Type: 
  Country: None (occurrence: None)
  Receive Date: 20081121
  Receipt Date: 20081110
  Transmission Date: 20090506
  Serious: Yes (Hospitalization)
  Sender: FDA-Public Use
  Company Number: PHHY2008GB28522

PATIENT
  Age: 62 Year
  Sex: Male

DRUGS (3)
  1. CLOZAPINE [Suspect]
     Indication: SCHIZOPHRENIA
     Dosage: 150 MG, QD
     Route: 048
     Dates: start: 20080911
  2. FLUDROCORTISONE ACETATE [Concomitant]
  3. OLANZAPINE [Concomitant]
     Dosage: UNK
     Dates: end: 20080911

REACTIONS (8)
  - CLOSTRIDIAL INFECTION [None]
  - COLOSTOMY [None]
  - CONFUSIONAL STATE [None]
  - DIARRHOEA [None]
  - HYPOTENSION [None]
  - MEGACOLON [None]
  - MULTI-ORGAN FAILURE [None]
  - URINARY TRACT INFECTION [None]
